FAERS Safety Report 24406200 (Version 3)
Quarter: 2024Q4

REPORT INFORMATION
  Report Type: Spontaneous
  Country: US (occurrence: US)
  Receive Date: 20241007
  Receipt Date: 20241018
  Transmission Date: 20250115
  Serious: Yes (Hospitalization, Other)
  Sender: BLUEPRINT MEDICINES
  Company Number: US-Blueprint Medicines Corporation-4952

PATIENT
  Sex: Male

DRUGS (2)
  1. AYVAKIT [Suspect]
     Active Substance: AVAPRITINIB
     Indication: Gastrointestinal stromal tumour
     Route: 048
     Dates: start: 20240906
  2. AYVAKIT [Suspect]
     Active Substance: AVAPRITINIB
     Route: 065
     Dates: start: 20240906, end: 202410

REACTIONS (8)
  - Ascites [Unknown]
  - Intra-abdominal haemorrhage [Unknown]
  - Abdominal distension [Unknown]
  - Fluid retention [Unknown]
  - Vision blurred [Unknown]
  - Lacrimation increased [Unknown]
  - Asthenia [Unknown]
  - Fatigue [Unknown]
